FAERS Safety Report 5406139-6 (Version None)
Quarter: 2007Q3

REPORT INFORMATION
  Report Type: 
  Country: None (occurrence: None)
  Receive Date: 20070802
  Receipt Date: 20070723
  Transmission Date: 20080115
  Serious: Yes (Hospitalization)
  Sender: FDA-Public Use
  Company Number: 2007-03451

PATIENT
  Age: 40 Year
  Sex: Male

DRUGS (7)
  1. LIDOCAINE HYDROCHLORIDE 1% W/ EPINEPHRINE INJ [Suspect]
     Indication: ANGIOEDEMA
     Dosage: 1 MG, SINGLE, SUBCUTANEOUS; 1 MG, SINGLE IV BOLUS; 1 MG, SINGLE, IV BOLUS
     Route: 058
     Dates: start: 20070101, end: 20070101
  2. LIDOCAINE HYDROCHLORIDE 1% W/ EPINEPHRINE INJ [Suspect]
     Indication: ANGIOEDEMA
     Dosage: 1 MG, SINGLE, SUBCUTANEOUS; 1 MG, SINGLE IV BOLUS; 1 MG, SINGLE, IV BOLUS
     Route: 058
     Dates: start: 20070101, end: 20070101
  3. LIDOCAINE HYDROCHLORIDE 1% W/ EPINEPHRINE INJ [Suspect]
     Indication: ANGIOEDEMA
     Dosage: 1 MG, SINGLE, SUBCUTANEOUS; 1 MG, SINGLE IV BOLUS; 1 MG, SINGLE, IV BOLUS
     Route: 058
     Dates: start: 20070101, end: 20070101
  4. PARAMAX (PARACETAMOL, METOCLOPRAMIDE HYDROCHLORIDE) [Concomitant]
  5. PROMETHAZINE [Concomitant]
  6. HYDROCORTISONE [Concomitant]
  7. METOCLOPRAMIDE [Concomitant]

REACTIONS (3)
  - HYPOTENSION [None]
  - MEDICATION ERROR [None]
  - MYOCARDIAL ISCHAEMIA [None]
